FAERS Safety Report 21824277 (Version 1)
Quarter: 2023Q1

REPORT INFORMATION
  Report Type: Spontaneous
  Country: US (occurrence: None)
  Receive Date: 20230104
  Receipt Date: 20230104
  Transmission Date: 20230418
  Serious: Yes (Life-Threatening, Disabling)
  Sender: FDA-Public Use
  Company Number: None

PATIENT
  Age: 47 Year
  Sex: Female
  Weight: 45 kg

DRUGS (2)
  1. EPHEDRINE [Suspect]
     Active Substance: EPHEDRINE
     Indication: Cough
     Dosage: OTHER QUANTITY : 1 LB;?FREQUENCY : TWICE A DAY;?
     Route: 048
     Dates: start: 20180201, end: 20191230
  2. HERBALS [Suspect]
     Active Substance: HERBALS
     Indication: Cough
     Dosage: OTHER QUANTITY : 1 LB;?FREQUENCY : TWICE A DAY;?
     Route: 048
     Dates: start: 20180201, end: 20191230

REACTIONS (4)
  - Toxicity to various agents [None]
  - Product use issue [None]
  - Back pain [None]
  - Lymphoma [None]

NARRATIVE: CASE EVENT DATE: 20191223
